FAERS Safety Report 22334826 (Version 2)
Quarter: 2023Q2

REPORT INFORMATION
  Report Type: Report from Study
  Country: US (occurrence: US)
  Receive Date: 20230517
  Receipt Date: 20230523
  Transmission Date: 20230721
  Serious: Yes (Other)
  Sender: FDA-Public Use
  Company Number: US-BIOGEN-2023BI01204886

PATIENT
  Sex: Male

DRUGS (1)
  1. ADUHELM [Suspect]
     Active Substance: ADUCANUMAB-AVWA
     Indication: Dementia Alzheimer^s type
     Route: 050

REACTIONS (6)
  - Myelosuppression [Unknown]
  - Parkinson^s disease [Unknown]
  - Dizziness [Unknown]
  - Poverty of speech [Unknown]
  - Decreased activity [Unknown]
  - Disturbance in attention [Unknown]
